FAERS Safety Report 11522056 (Version 1)
Quarter: 2015Q3

REPORT INFORMATION
  Report Type: Spontaneous
  Country: DE (occurrence: DE)
  Receive Date: 20150918
  Receipt Date: 20150918
  Transmission Date: 20151125
  Serious: Yes (Other)
  Sender: FDA-Public Use
  Company Number: GXKR2015DE004292

PATIENT

DRUGS (4)
  1. FOLSAEURE [Concomitant]
     Active Substance: FOLIC ACID
     Indication: PROPHYLAXIS OF NEURAL TUBE DEFECT
     Route: 048
  2. CITALOPRAM [Suspect]
     Active Substance: CITALOPRAM HYDROBROMIDE
     Dosage: 10 MG, QD
     Route: 048
     Dates: end: 20150611
  3. CITALOPRAM [Suspect]
     Active Substance: CITALOPRAM HYDROBROMIDE
     Indication: DEPRESSION
     Dosage: 20 MG, QD TILL WEEK 16
     Route: 048
     Dates: start: 20140902
  4. CITALOPRAM [Suspect]
     Active Substance: CITALOPRAM HYDROBROMIDE
     Dosage: 15 MG, QD TILL WEEK 27
     Route: 048

REACTIONS (5)
  - Urinary tract infection bacterial [Unknown]
  - Streptococcus test positive [Unknown]
  - Listeriosis [Unknown]
  - Cephalo-pelvic disproportion [Unknown]
  - Vaginal pH increased [Unknown]
